FAERS Safety Report 4610413-0 (Version None)
Quarter: 2005Q1

REPORT INFORMATION
  Report Type: 
  Country: None (occurrence: None)
  Receive Date: 20050314
  Receipt Date: 20050303
  Transmission Date: 20050727
  Serious: Yes (Other)
  Sender: FDA-Public Use
  Company Number: US-2005-003105

PATIENT
  Age: 23 Year
  Sex: Female

DRUGS (1)
  1. YASMIN [Suspect]
     Indication: ORAL CONTRACEPTION
     Dosage: 1 TAB(S), 1X/DAY, ORAL
     Route: 048
     Dates: start: 20031101, end: 20050212

REACTIONS (6)
  - DIZZINESS [None]
  - HOT FLUSH [None]
  - HYPOAESTHESIA [None]
  - MOOD SWINGS [None]
  - PANIC ATTACK [None]
  - SUICIDAL IDEATION [None]
